FAERS Safety Report 12919237 (Version 1)
Quarter: 2016Q4

REPORT INFORMATION
  Report Type: Spontaneous
  Country: US (occurrence: US)
  Receive Date: 20161108
  Receipt Date: 20161108
  Transmission Date: 20170207
  Serious: No
  Sender: FDA-Public Use
  Company Number: US-009507513-1610USA012771

PATIENT

DRUGS (3)
  1. CUBICIN RF [Suspect]
     Active Substance: DAPTOMYCIN
     Dosage: UNK
     Route: 042
  2. CUBICIN RF [Suspect]
     Active Substance: DAPTOMYCIN
     Dosage: UNK
     Route: 042
  3. CUBICIN [Suspect]
     Active Substance: DAPTOMYCIN
     Dosage: UNK

REACTIONS (3)
  - Incorrect product storage [Unknown]
  - Product packaging confusion [Unknown]
  - No adverse event [Unknown]
